FAERS Safety Report 6854161-5 (Version None)
Quarter: 2010Q3

REPORT INFORMATION
  Report Type: 
  Country: None (occurrence: None)
  Receive Date: 20100717
  Receipt Date: 20080208
  Transmission Date: 20110219
  Serious: No
  Sender: FDA-Public Use
  Company Number: US-PFIZER INC-2007105417

PATIENT
  Sex: Female
  Weight: 90.9 kg

DRUGS (6)
  1. CHANTIX [Suspect]
     Indication: SMOKING CESSATION THERAPY
     Dates: start: 20071113, end: 20071122
  2. LEXAPRO [Concomitant]
  3. GEODON [Concomitant]
  4. TRAZODONE HYDROCHLORIDE [Concomitant]
  5. MOBIC [Concomitant]
  6. VITAMINS [Concomitant]

REACTIONS (4)
  - CRYING [None]
  - DEPRESSION [None]
  - INFLUENZA LIKE ILLNESS [None]
  - NAUSEA [None]
